FAERS Safety Report 8263543-9 (Version None)
Quarter: 2012Q1

REPORT INFORMATION
  Report Type: 
  Country: None (occurrence: None)
  Receive Date: 20120327
  Receipt Date: 20090415
  Transmission Date: 20120608
  Serious: Yes (Disabling)
  Sender: FDA-Public Use
  Company Number: PHEH2009US03810

PATIENT
  Age: 42 Year
  Sex: Male

DRUGS (1)
  1. GLEEVEC [Suspect]
     Dosage: 400 MG, QD, ORAL
     Route: 048
     Dates: start: 20090303, end: 20090408

REACTIONS (1)
  - ARTHRALGIA [None]
